FAERS Safety Report 18373987 (Version 1)
Quarter: 2020Q4

REPORT INFORMATION
  Report Type: Spontaneous
  Country: RU (occurrence: RU)
  Receive Date: 20201012
  Receipt Date: 20201012
  Transmission Date: 20210114
  Serious: Yes (Life-Threatening, Other)
  Sender: FDA-Public Use
  Company Number: RU-ABBVIE-20K-251-3605251-00

PATIENT
  Sex: Female

DRUGS (6)
  1. HUMIRA [Suspect]
     Active Substance: ADALIMUMAB
     Indication: JUVENILE IDIOPATHIC ARTHRITIS
  2. DIPROSPAN [BETAMETHASONE DIPROPIONATE] [Concomitant]
     Active Substance: BETAMETHASONE DIPROPIONATE
     Indication: UVEITIS
     Route: 030
  3. DIPROSPAN [BETAMETHASONE DIPROPIONATE] [Concomitant]
     Active Substance: BETAMETHASONE DIPROPIONATE
     Indication: JUVENILE IDIOPATHIC ARTHRITIS
  4. METHOTREXATE. [Concomitant]
     Active Substance: METHOTREXATE
     Indication: UVEITIS
  5. METHOTREXATE. [Concomitant]
     Active Substance: METHOTREXATE
     Indication: JUVENILE IDIOPATHIC ARTHRITIS
     Route: 030
  6. HUMIRA [Suspect]
     Active Substance: ADALIMUMAB
     Indication: UVEITIS
     Route: 058

REACTIONS (1)
  - Febrile neutropenia [Unknown]

NARRATIVE: CASE EVENT DATE: 2007
